FAERS Safety Report 14488120 (Version 7)
Quarter: 2022Q4

REPORT INFORMATION
  Report Type: Spontaneous
  Country: US (occurrence: US)
  Receive Date: 20180205
  Receipt Date: 20221124
  Transmission Date: 20230112
  Serious: Yes (Hospitalization, Other)
  Sender: FDA-Public Use
  Company Number: US-PFIZER INC-2017273721

PATIENT
  Age: 57 Year
  Sex: Female
  Weight: 59 kg

DRUGS (1)
  1. XELJANZ [Suspect]
     Active Substance: TOFACITINIB CITRATE
     Indication: Rheumatoid arthritis
     Dosage: 5 MG, 2X/DAY
     Route: 048
     Dates: start: 201703

REACTIONS (13)
  - Fall [Unknown]
  - Lower limb fracture [Recovering/Resolving]
  - Ankle fracture [Recovering/Resolving]
  - Upper limb fracture [Not Recovered/Not Resolved]
  - Gait inability [Not Recovered/Not Resolved]
  - Abdominal pain upper [Unknown]
  - Weight decreased [Recovered/Resolved]
  - Increased appetite [Unknown]
  - Abdominal pain [Unknown]
  - Decreased appetite [Unknown]
  - Platelet disorder [Unknown]
  - Inflammation [Unknown]
  - Intentional product misuse [Unknown]

NARRATIVE: CASE EVENT DATE: 20171001
